FAERS Safety Report 5926072-0 (Version None)
Quarter: 2008Q4

REPORT INFORMATION
  Report Type: 
  Country: None (occurrence: None)
  Receive Date: 20081016
  Receipt Date: 20081001
  Transmission Date: 20090506
  Serious: Yes (Other)
  Sender: FDA-Public Use
  Company Number: 2008S1017880

PATIENT
  Age: 38 Year
  Sex: Female

DRUGS (4)
  1. FELODUR ER (FELODIPINE) (2.5 MG) [Suspect]
     Indication: BLOOD PRESSURE
     Dosage: 2.5 MG; DAILY; ORAL
     Route: 048
     Dates: start: 20080826
  2. MULTI-VITAMIN [Concomitant]
  3. IRON [Concomitant]
  4. ACETAMINOPHEN [Concomitant]

REACTIONS (5)
  - CHEST PAIN [None]
  - DIZZINESS [None]
  - FATIGUE [None]
  - HEART RATE INCREASED [None]
  - MUSCLE SPASMS [None]
